FAERS Safety Report 25977167 (Version 2)
Quarter: 2025Q4

REPORT INFORMATION
  Report Type: Spontaneous
  Country: EU (occurrence: EU)
  Receive Date: 20251030
  Receipt Date: 20251110
  Transmission Date: 20260117
  Serious: Yes (Other)
  Sender: IPCA
  Company Number: EU-ASTRAZENECA-202504EEA014777DE

PATIENT

DRUGS (14)
  1. METFORMIN [Suspect]
     Active Substance: METFORMIN HYDROCHLORIDE
     Indication: Diabetes mellitus
     Dosage: 500 MILLIGRAM, BID
     Route: 065
  2. ROSUVASTATIN [Suspect]
     Active Substance: ROSUVASTATIN
     Indication: Product used for unknown indication
     Dosage: 20 MILLIGRAM, QD
     Route: 065
  3. DAPAGLIFLOZIN [Suspect]
     Active Substance: DAPAGLIFLOZIN
     Indication: Diabetes mellitus
     Dosage: 10 MILLIGRAM, QD
     Route: 065
  4. INSULIN GLARGINE [Suspect]
     Active Substance: INSULIN GLARGINE
     Indication: Diabetes mellitus
     Dosage: 28 INTERNATIONAL UNIT
     Route: 065
  5. INSULIN GLARGINE [Suspect]
     Active Substance: INSULIN GLARGINE
     Dosage: 10 UNIT
     Route: 065
  6. ASPIRIN [Suspect]
     Active Substance: ASPIRIN
     Indication: Product used for unknown indication
     Dosage: 100 MILLIGRAM, QD
     Route: 065
  7. EPLERENONE [Suspect]
     Active Substance: EPLERENONE
     Indication: Hypertension
     Dosage: 50 MILLIGRAM, QD
     Route: 065
  8. LERCANIDIPINE [Suspect]
     Active Substance: LERCANIDIPINE
     Indication: Hypertension
     Dosage: 20 MILLIGRAM, QD
     Route: 065
  9. CHLORTHALIDONE [Suspect]
     Active Substance: CHLORTHALIDONE
     Indication: Hypertension
     Dosage: 25 MILLIGRAM, QD
     Route: 065
  10. CANDESARTAN [Suspect]
     Active Substance: CANDESARTAN
     Indication: Hypertension
     Dosage: 32 MILLIGRAM, QD
     Route: 065
  11. URAPIDIL [Suspect]
     Active Substance: URAPIDIL
     Indication: Hypertension
     Dosage: 30 MILLIGRAM, BID
     Route: 065
  12. TIRZEPATIDE [Concomitant]
     Active Substance: TIRZEPATIDE
     Indication: Product used for unknown indication
     Dosage: 2.5 MILLIGRAM
     Route: 065
  13. TIRZEPATIDE [Concomitant]
     Active Substance: TIRZEPATIDE
     Dosage: 5 MILLIGRAM
     Route: 065
  14. TIRZEPATIDE [Concomitant]
     Active Substance: TIRZEPATIDE
     Dosage: 7.5 MILLIGRAM, Q.W
     Route: 065

REACTIONS (3)
  - Diabetes mellitus inadequate control [Recovered/Resolved]
  - Systolic hypertension [Recovered/Resolved]
  - Drug resistance [Unknown]
